FAERS Safety Report 5480541-9 (Version None)
Quarter: 2007Q4

REPORT INFORMATION
  Report Type: 
  Country: None (occurrence: None)
  Receive Date: 20071009
  Receipt Date: 20071004
  Transmission Date: 20080405
  Serious: Yes (Hospitalization)
  Sender: FDA-Public Use
  Company Number: US-BRISTOL-MYERS SQUIBB COMPANY-13930151

PATIENT
  Age: 79 Year
  Sex: Male
  Weight: 68 kg

DRUGS (1)
  1. TEQUIN [Suspect]

REACTIONS (4)
  - CONVULSION [None]
  - HYPERHIDROSIS [None]
  - HYPOGLYCAEMIA [None]
  - PNEUMONIA [None]
